FAERS Safety Report 18845148 (Version 1)
Quarter: 2021Q1

REPORT INFORMATION
  Report Type: Spontaneous
  Country: US (occurrence: US)
  Receive Date: 20210204
  Receipt Date: 20210204
  Transmission Date: 20210419
  Serious: No
  Sender: FDA-Public Use
  Company Number: US-AMGEN-USASP2021015166

PATIENT
  Sex: Female

DRUGS (1)
  1. XGEVA [Suspect]
     Active Substance: DENOSUMAB
     Indication: GRANULOMA
     Dosage: 120 MILLIGRAM,  THREE INJECTIONS AT WEELDY INTERVALS FOLLOWED BY FIVE INJECTIONS AT MONTHLY INTERVAL
     Route: 058

REACTIONS (2)
  - Off label use [Unknown]
  - Therapy partial responder [Unknown]
